FAERS Safety Report 5250885-4 (Version None)
Quarter: 2007Q1

REPORT INFORMATION
  Report Type: 
  Country: None (occurrence: None)
  Receive Date: 20070228
  Receipt Date: 20060724
  Transmission Date: 20070707
  Serious: Yes (Other)
  Sender: FDA-Public Use
  Company Number: US-GLAXOSMITHKLINE-A0613334A

PATIENT
  Age: 12 Year
  Sex: Female

DRUGS (3)
  1. LAMICTAL [Suspect]
     Indication: EPILEPSY
     Dosage: 25MG TWICE PER DAY
     Route: 048
     Dates: start: 20060619, end: 20060702
  2. VITAMIN D [Concomitant]
  3. BENADRYL [Concomitant]
     Indication: RASH
     Route: 048

REACTIONS (3)
  - COMMUNICATION DISORDER [None]
  - RASH MORBILLIFORM [None]
  - THERAPEUTIC RESPONSE UNEXPECTED [None]
